FAERS Safety Report 4731174-0 (Version None)
Quarter: 2005Q3

REPORT INFORMATION
  Report Type: 
  Country: None (occurrence: None)
  Receive Date: 20050729
  Receipt Date: 20050729
  Transmission Date: 20060218
  Serious: No
  Sender: FDA-Public Use
  Company Number: None

PATIENT
  Age: 77 Year
  Sex: Male
  Weight: 63.5036 kg

DRUGS (1)
  1. FLOMAX [Suspect]
     Indication: TRANSURETHRAL PROSTATECTOMY
     Dosage: 0.4 MG P.O.  1 DAILY
     Route: 048

REACTIONS (2)
  - IRIS DISORDER [None]
  - MIOSIS [None]
